FAERS Safety Report 22377083 (Version 1)
Quarter: 2023Q2

REPORT INFORMATION
  Report Type: Spontaneous
  Country: US (occurrence: US)
  Receive Date: 20230529
  Receipt Date: 20230529
  Transmission Date: 20230722
  Serious: No
  Sender: FDA-Public Use
  Company Number: US-ABBVIE-4773335

PATIENT
  Sex: Female

DRUGS (2)
  1. HUMIRA [Interacting]
     Active Substance: ADALIMUMAB
     Indication: Product used for unknown indication
     Route: 058
  2. DUPIXENT [Interacting]
     Active Substance: DUPILUMAB
     Indication: Product used for unknown indication
     Route: 058

REACTIONS (4)
  - Swelling [Recovered/Resolved]
  - Drug interaction [Unknown]
  - Asthma [Not Recovered/Not Resolved]
  - Immunodeficiency [Not Recovered/Not Resolved]
